FAERS Safety Report 6135307-3 (Version None)
Quarter: 2009Q1

REPORT INFORMATION
  Report Type: 
  Country: None (occurrence: None)
  Receive Date: 20090327
  Receipt Date: 20090316
  Transmission Date: 20090719
  Serious: Yes (Hospitalization, Disabling, Other)
  Sender: FDA-Public Use
  Company Number: BR-ELI_LILLY_AND_COMPANY-BR200903004033

PATIENT
  Age: 58 Year
  Sex: Female

DRUGS (3)
  1. ZYPREXA [Suspect]
     Indication: BIPOLAR DISORDER
     Dosage: 10 MG, DAILY (1/D)
     Route: 048
  2. CARBOLITHIUM [Concomitant]
     Dosage: 900 MG, DAILY (1/D)
     Route: 065
  3. CARBAMAZEPINE [Concomitant]
     Dosage: UNK, UNKNOWN
     Route: 065

REACTIONS (5)
  - BLISTER [None]
  - GAIT DISTURBANCE [None]
  - HALLUCINATION, VISUAL [None]
  - NECROSIS [None]
  - NEUROLEPTIC MALIGNANT SYNDROME [None]
